FAERS Safety Report 13876262 (Version 1)
Quarter: 2017Q3

REPORT INFORMATION
  Report Type: Spontaneous
  Country: US (occurrence: US)
  Receive Date: 20170817
  Receipt Date: 20170817
  Transmission Date: 20171127
  Serious: No
  Sender: FDA-Public Use
  Company Number: US-APOTEX-2017AP016521

PATIENT
  Sex: Male

DRUGS (1)
  1. PAXIL [Suspect]
     Active Substance: PAROXETINE HYDROCHLORIDE
     Indication: PANIC ATTACK
     Route: 065

REACTIONS (6)
  - Ill-defined disorder [Unknown]
  - Hyperhidrosis [Unknown]
  - Condition aggravated [Unknown]
  - Adverse drug reaction [Unknown]
  - Anger [Unknown]
  - Panic attack [Unknown]
